FAERS Safety Report 8530033-5 (Version None)
Quarter: 2012Q3

REPORT INFORMATION
  Report Type: 
  Country: None (occurrence: None)
  Receive Date: 20120723
  Receipt Date: 20120713
  Transmission Date: 20120928
  Serious: Yes (Other)
  Sender: FDA-Public Use
  Company Number: US-JNJFOC-20120707015

PATIENT
  Sex: Female
  Weight: 54.43 kg

DRUGS (13)
  1. HYDROCHLOROTHIAZIDE [Concomitant]
     Route: 065
  2. BALSALAZIDE DISODIUM [Concomitant]
     Indication: COLITIS
     Route: 065
  3. QUINAPRILAT [Concomitant]
     Indication: BLOOD PRESSURE
     Route: 065
  4. FOLIC ACID [Concomitant]
     Indication: COLITIS ULCERATIVE
     Route: 065
     Dates: start: 20020101
  5. LORATADINE [Concomitant]
     Indication: MULTIPLE ALLERGIES
     Route: 065
  6. LEVAQUIN [Suspect]
     Indication: COLITIS ULCERATIVE
     Route: 042
  7. LEVAQUIN [Suspect]
     Route: 048
  8. PREDNISONE [Suspect]
     Indication: COLITIS ULCERATIVE
     Route: 048
     Dates: start: 20020101
  9. POTASSIUM CHLORIDE [Concomitant]
     Route: 065
  10. OMEPRAZOLE [Concomitant]
     Indication: GASTRIC DISORDER
     Route: 048
  11. PREDNISONE [Concomitant]
     Route: 065
     Dates: start: 20020101
  12. CLARITIN [Concomitant]
     Indication: MULTIPLE ALLERGIES
     Route: 065
  13. IRON [Concomitant]
     Route: 065

REACTIONS (6)
  - CONTUSION [None]
  - ABNORMAL WEIGHT GAIN [None]
  - OSTEOPENIA [None]
  - INFUSION SITE ERYTHEMA [None]
  - OSTEOPOROSIS [None]
  - FALL [None]
